FAERS Safety Report 9583199 (Version 1)
Quarter: 2013Q4

REPORT INFORMATION
  Report Type: Spontaneous
  Country: US (occurrence: US)
  Receive Date: 20131002
  Receipt Date: 20131002
  Transmission Date: 20140711
  Serious: No
  Sender: FDA-Public Use
  Company Number: US-AMGEN-USASP2013045211

PATIENT
  Age: 47 Year
  Sex: Female
  Weight: 87.08 kg

DRUGS (13)
  1. ENBREL [Suspect]
     Indication: PRODUCT USED FOR UNKNOWN INDICATION
     Dosage: 50 MG, QWK
     Route: 058
  2. EFFEXOR [Concomitant]
     Dosage: 100 MG, UNK
  3. BOTOX [Concomitant]
     Dosage: 100 UNIT, UNK
  4. PLAQUENIL                          /00072602/ [Concomitant]
     Dosage: 200 MG, UNK
  5. ZYRTEC ALLERGY [Concomitant]
     Dosage: 10 MG, UNK
  6. BENTYL [Concomitant]
     Dosage: 10 MG, UNK
  7. FOLIC ACID [Concomitant]
     Dosage: 1 MG, UNK
  8. NEXIUM                             /01479302/ [Concomitant]
     Dosage: 20 MG, UNK
  9. TENORETIC [Concomitant]
     Dosage: 50 UNK, UNK
  10. TRAZODONE [Concomitant]
     Dosage: 150 MG, UNK
  11. POTASSIUM [Concomitant]
     Dosage: 25 MEQ, UNK
  12. TRAMADOL HCL [Concomitant]
     Dosage: 150 MG, UNK
  13. TYLENOL                            /00020001/ [Concomitant]
     Dosage: 500 MG, UNK

REACTIONS (1)
  - Headache [Unknown]
